FAERS Safety Report 23937034 (Version 1)
Quarter: 2024Q2

REPORT INFORMATION
  Report Type: Spontaneous
  Country: US (occurrence: None)
  Receive Date: 20240603
  Receipt Date: 20240603
  Transmission Date: 20240715
  Serious: No
  Sender: FDA-Public Use
  Company Number: None

PATIENT
  Age: 40 Year
  Sex: Male
  Weight: 150.75 kg

DRUGS (2)
  1. GAMUNEX-C [Suspect]
     Active Substance: HUMAN IMMUNOGLOBULIN G
     Indication: Chronic inflammatory demyelinating polyradiculoneuropathy
     Dosage: 75 G GRAM(S)  ONCE EVERY OTHER W SUBCUTANEOUS?
     Route: 058
  2. GAMUNEX-C [Concomitant]
     Active Substance: HUMAN IMMUNOGLOBULIN G
     Dates: start: 20240603, end: 20240603

REACTIONS (4)
  - Dyspnoea [None]
  - Chest discomfort [None]
  - Oxygen saturation decreased [None]
  - Chronic inflammatory demyelinating polyradiculoneuropathy [None]

NARRATIVE: CASE EVENT DATE: 20240603
